FAERS Safety Report 5235417-9 (Version None)
Quarter: 2007Q1

REPORT INFORMATION
  Report Type: 
  Country: None (occurrence: None)
  Receive Date: 20070208
  Receipt Date: 20070208
  Transmission Date: 20070707
  Serious: No
  Sender: FDA-Public Use
  Company Number: None

PATIENT
  Age: 72 Year
  Sex: Female

DRUGS (1)
  1. IFOSFAMIDE [Suspect]

REACTIONS (3)
  - DRUG TOXICITY [None]
  - ENCEPHALOPATHY [None]
  - FLAT AFFECT [None]
